FAERS Safety Report 23231154 (Version 2)
Quarter: 2024Q1

REPORT INFORMATION
  Report Type: Spontaneous
  Country: US (occurrence: US)
  Receive Date: 20231127
  Receipt Date: 20240302
  Transmission Date: 20240410
  Serious: Yes (Other)
  Sender: FDA-Public Use
  Company Number: US-JNJFOC-20231161042

PATIENT
  Sex: Female

DRUGS (1)
  1. ELMIRON [Suspect]
     Active Substance: PENTOSAN POLYSULFATE SODIUM
     Indication: Product used for unknown indication
     Route: 048
     Dates: end: 202008

REACTIONS (2)
  - Pigmentary maculopathy [Not Recovered/Not Resolved]
  - Off label use [Unknown]
